FAERS Safety Report 5056426-9 (Version None)
Quarter: 2006Q3

REPORT INFORMATION
  Report Type: 
  Country: None (occurrence: None)
  Receive Date: 20060717
  Receipt Date: 20060704
  Transmission Date: 20061208
  Serious: Yes (Hospitalization)
  Sender: FDA-Public Use
  Company Number: 8017791

PATIENT
  Age: 31 Year
  Sex: Male

DRUGS (6)
  1. KEPPRA [Suspect]
     Indication: EPILEPSY
     Dosage: 2500 MG/D
     Dates: start: 20050901, end: 20060516
  2. KEPPRA [Suspect]
     Indication: EPILEPSY
     Dosage: 3000 MG/D
     Dates: start: 20060517, end: 20060613
  3. KEPPRA [Suspect]
     Indication: EPILEPSY
     Dosage: 3500 MG/D
     Dates: start: 20060614
  4. ERGENYL [Concomitant]
  5. TIMOX D [Concomitant]
  6. TIMOX [Concomitant]

REACTIONS (4)
  - GRAND MAL CONVULSION [None]
  - PARTIAL SEIZURES [None]
  - SOMNOLENCE [None]
  - VOMITING [None]
